FAERS Safety Report 8841802 (Version 2)
Quarter: 2012Q4

REPORT INFORMATION
  Report Type: 
  Country: US (occurrence: US)
  Receive Date: 20121016
  Receipt Date: 20121115
  Transmission Date: 20130627
  Serious: Yes (Other)
  Sender: FDA-Public Use
  Company Number: US-JNJFOC-20121005091

PATIENT
  Age: 64 None
  Sex: Male
  Weight: 87.09 kg

DRUGS (13)
  1. REMICADE [Suspect]
     Indication: COLITIS ULCERATIVE
     Route: 042
     Dates: start: 20120822, end: 20120822
  2. REMICADE [Suspect]
     Indication: COLITIS ULCERATIVE
     Route: 042
     Dates: start: 201207
  3. REMICADE [Suspect]
     Indication: COLITIS ULCERATIVE
     Route: 042
     Dates: start: 20120429, end: 201207
  4. PLAVIX [Concomitant]
     Indication: CARDIAC DISORDER
     Route: 048
     Dates: start: 200806
  5. PLAVIX [Concomitant]
     Indication: STENT PLACEMENT
     Route: 048
     Dates: start: 200806
  6. ZESTRIL [Concomitant]
     Indication: HYPERTENSION
     Route: 048
     Dates: start: 1982
  7. TRICOR [Concomitant]
     Indication: BLOOD TRIGLYCERIDES
     Route: 048
     Dates: start: 2005
  8. TRICOR [Concomitant]
     Indication: BLOOD CHOLESTEROL
     Route: 048
     Dates: start: 2005
  9. LOVAZA [Concomitant]
     Indication: CARDIAC DISORDER
     Route: 065
     Dates: start: 2006
  10. VITAMIN D [Concomitant]
     Indication: BLOOD CALCIUM
     Route: 065
     Dates: start: 2010
  11. MULTIVITAMINS [Concomitant]
     Route: 065
     Dates: start: 1980
  12. ZYRTEC [Concomitant]
     Indication: HYPERSENSITIVITY
     Route: 065
     Dates: start: 2009
  13. PREDNISONE [Concomitant]
     Indication: COLITIS
     Route: 065
     Dates: start: 201206, end: 201208

REACTIONS (5)
  - Sinusitis [Recovered/Resolved]
  - Gingival infection [Recovering/Resolving]
  - Drug ineffective [Unknown]
  - Tooth disorder [Recovering/Resolving]
  - Abscess [Recovering/Resolving]
